FAERS Safety Report 22325516 (Version 4)
Quarter: 2023Q4

REPORT INFORMATION
  Report Type: Spontaneous
  Country: US (occurrence: US)
  Receive Date: 20230516
  Receipt Date: 20231220
  Transmission Date: 20240109
  Serious: Yes (Other)
  Sender: FDA-Public Use
  Company Number: US-UCBSA-2023024652

PATIENT
  Age: 57 Year
  Sex: Female
  Weight: 80.73 kg

DRUGS (1)
  1. CIMZIA [Suspect]
     Active Substance: CERTOLIZUMAB PEGOL
     Indication: Ankylosing spondylitis
     Dosage: 400 MILLIGRAM, EV 4 WEEKS
     Route: 058
     Dates: start: 202304

REACTIONS (3)
  - Ankylosing spondylitis [Unknown]
  - Neuropathy peripheral [Unknown]
  - Hot flush [Unknown]

NARRATIVE: CASE EVENT DATE: 20230401
